FAERS Safety Report 17460616 (Version 1)
Quarter: 2020Q1

REPORT INFORMATION
  Report Type: Spontaneous
  Country: US (occurrence: US)
  Receive Date: 20200213
  Receipt Date: 20200213
  Transmission Date: 20200409
  Serious: No
  Sender: FDA-Public Use
  Company Number: None

PATIENT
  Sex: Female

DRUGS (1)
  1. GLATIRAMER ACETATE (12X1ML) 40MG/ML MYLAN [Suspect]
     Active Substance: GLATIRAMER ACETATE
     Indication: MULTIPLE SCLEROSIS
     Dosage: ?          OTHER DOSE:40MG/ML;?
     Route: 058
     Dates: start: 201912

REACTIONS (4)
  - Headache [None]
  - Injection site reaction [None]
  - Raynaud^s phenomenon [None]
  - Condition aggravated [None]
